FAERS Safety Report 8256532-1 (Version None)
Quarter: 2012Q2

REPORT INFORMATION
  Report Type: 
  Country: None (occurrence: None)
  Receive Date: 20120403
  Receipt Date: 20120329
  Transmission Date: 20120825
  Serious: Yes (Hospitalization, Other)
  Sender: FDA-Public Use
  Company Number: US-PFIZER INC-2011147842

PATIENT
  Sex: Female

DRUGS (8)
  1. CLONIDINE [Concomitant]
     Dosage: UNK
     Dates: start: 20070925, end: 20091230
  2. FENTANYL [Concomitant]
     Dosage: UNK
     Dates: start: 20050218, end: 20100301
  3. CHANTIX [Suspect]
     Indication: SMOKING CESSATION THERAPY
     Dosage: STARTER PACK, UNK
     Dates: start: 20071201, end: 20071226
  4. PROMETHAZINE [Concomitant]
     Dosage: UNK
     Dates: start: 20070215, end: 20101230
  5. CARISOPRODOL [Concomitant]
     Dosage: UNK
     Dates: start: 20040827, end: 20100712
  6. CLINDAMYCIN [Concomitant]
     Dosage: UNK
     Dates: start: 20050922, end: 20090217
  7. BELLADONNA ALKALOIDS [Concomitant]
     Dosage: UNK
     Dates: start: 20050711, end: 20080819
  8. OXYCODONE [Concomitant]
     Dosage: UNK
     Dates: start: 20040105, end: 20101228

REACTIONS (10)
  - HALLUCINATION, AUDITORY [None]
  - INTENTIONAL OVERDOSE [None]
  - ABNORMAL DREAMS [None]
  - DEPRESSION [None]
  - DRUG WITHDRAWAL SYNDROME [None]
  - ABNORMAL BEHAVIOUR [None]
  - PARANOIA [None]
  - MOOD ALTERED [None]
  - SUICIDE ATTEMPT [None]
  - AGGRESSION [None]
